FAERS Safety Report 12009563 (Version 1)
Quarter: 2016Q1

REPORT INFORMATION
  Report Type: Spontaneous
  Country: US (occurrence: US)
  Receive Date: 20160205
  Receipt Date: 20160205
  Transmission Date: 20160526
  Serious: No
  Sender: FDA-Public Use
  Company Number: US-PFIZER INC-2016010190

PATIENT
  Age: 61 Year
  Sex: Female
  Weight: 111 kg

DRUGS (19)
  1. FENTANYL. [Suspect]
     Active Substance: FENTANYL
     Dosage: UNK
  2. METHOTREXATE [Suspect]
     Active Substance: METHOTREXATE
     Dosage: UNK
  3. LEVAQUIN [Suspect]
     Active Substance: LEVOFLOXACIN
     Dosage: UNK
  4. AMPICILLIN [Suspect]
     Active Substance: AMPICILLIN
     Dosage: UNK
  5. ANCEF [Suspect]
     Active Substance: CEFAZOLIN SODIUM
     Dosage: UNK
  6. CRESTOR [Suspect]
     Active Substance: ROSUVASTATIN CALCIUM
     Dosage: UNK
  7. LESCOL [Suspect]
     Active Substance: FLUVASTATIN SODIUM
     Dosage: UNK
  8. SODIUM SULAMYD [Suspect]
     Active Substance: SULFACETAMIDE SODIUM
     Dosage: UNK
  9. CODEINE [Suspect]
     Active Substance: CODEINE
     Dosage: UNK
  10. BIAXIN [Suspect]
     Active Substance: CLARITHROMYCIN
     Dosage: UNK
  11. ZIDON [Suspect]
     Active Substance: DOMPERIDONE
     Dosage: UNK
  12. HYDROMORPHONE HYDROCHLORIDE. [Suspect]
     Active Substance: HYDROMORPHONE HYDROCHLORIDE
     Dosage: UNK
  13. CLARITHROMYCIN. [Suspect]
     Active Substance: CLARITHROMYCIN
     Dosage: UNK
  14. DURAMORPH [Suspect]
     Active Substance: MORPHINE SULFATE
     Dosage: UNK
  15. MORPHINE SULFATE. [Suspect]
     Active Substance: MORPHINE SULFATE
     Dosage: UNK
  16. AMOXICILLIN. [Suspect]
     Active Substance: AMOXICILLIN
     Dosage: UNK
  17. CEFAZOLIN SODIUM. [Suspect]
     Active Substance: CEFAZOLIN SODIUM
     Dosage: UNK
  18. NABUMETONE. [Suspect]
     Active Substance: NABUMETONE
     Dosage: UNK
  19. NYSTATIN. [Suspect]
     Active Substance: NYSTATIN
     Dosage: UNK

REACTIONS (1)
  - Drug hypersensitivity [Unknown]
